FAERS Safety Report 9788040 (Version 1)
Quarter: 2013Q4

REPORT INFORMATION
  Report Type: Spontaneous
  Country: US (occurrence: None)
  Receive Date: 20131227
  Receipt Date: 20131227
  Transmission Date: 20140711
  Serious: Yes (Hospitalization)
  Sender: FDA-Public Use
  Company Number: None

PATIENT
  Age: 90 Year
  Sex: Male
  Weight: 72.7 kg

DRUGS (9)
  1. PLAVIX [Suspect]
     Indication: CORONARY ARTERY DISEASE
     Dosage: CHRONIC
     Route: 048
  2. COUMADIN [Suspect]
     Indication: CORONARY ARTERY DISEASE
     Dosage: 5MG MWF?2.5MG TTHS
     Route: 048
  3. ASA [Suspect]
  4. ZOCOR [Concomitant]
  5. COREG [Concomitant]
  6. LASIX [Concomitant]
  7. KCL [Concomitant]
  8. NTG [Concomitant]
  9. FOLIC ACID [Concomitant]

REACTIONS (3)
  - Fall [None]
  - Epistaxis [None]
  - International normalised ratio increased [None]
